FAERS Safety Report 7003092-9 (Version None)
Quarter: 2010Q3

REPORT INFORMATION
  Report Type: 
  Country: None (occurrence: None)
  Receive Date: 20100920
  Receipt Date: 20091216
  Transmission Date: 20110219
  Serious: No
  Sender: FDA-Public Use
  Company Number: US-ASTRAZENECA-2009SE32362

PATIENT
  Age: 12 Year
  Sex: Male

DRUGS (7)
  1. SEROQUEL [Suspect]
     Indication: SCHIZOPHRENIA
     Route: 048
  2. SEROQUEL [Suspect]
     Route: 048
     Dates: start: 20091201, end: 20091215
  3. TRAZODONE HCL [Concomitant]
  4. STRATTERA [Concomitant]
  5. BUSPAR [Concomitant]
  6. NAMENDA [Concomitant]
  7. INVEGA [Concomitant]

REACTIONS (11)
  - ABNORMAL BEHAVIOUR [None]
  - AGGRESSION [None]
  - BITE [None]
  - DIZZINESS [None]
  - DRUG DISPENSING ERROR [None]
  - HEADACHE [None]
  - NAUSEA [None]
  - PARANOIA [None]
  - SCHIZOPHRENIA [None]
  - VOMITING [None]
  - WEIGHT INCREASED [None]
